FAERS Safety Report 21715309 (Version 1)
Quarter: 2022Q4

REPORT INFORMATION
  Report Type: Spontaneous
  Country: US (occurrence: US)
  Receive Date: 20221212
  Receipt Date: 20221212
  Transmission Date: 20230113
  Serious: No
  Sender: FDA-Public Use
  Company Number: US-FERRINGPH-2022FE05320

PATIENT
  Sex: Female
  Weight: 56.689 kg

DRUGS (2)
  1. MENOPUR [Suspect]
     Active Substance: FOLLITROPIN\LUTEINIZING HORMONE
     Indication: Assisted reproductive technology
     Dosage: 150 INTERNATIONAL UNIT, 1 BOX
     Route: 065
     Dates: start: 202210
  2. MENOPUR [Suspect]
     Active Substance: FOLLITROPIN\LUTEINIZING HORMONE
     Dosage: 75 INTERNATIONAL UNIT, 2 BOXES TOTAL OF 10 VIALS
     Route: 065
     Dates: start: 20220923

REACTIONS (2)
  - Blood oestrogen decreased [Unknown]
  - Product packaging quantity issue [Unknown]

NARRATIVE: CASE EVENT DATE: 20220101
